FAERS Safety Report 13117290 (Version 4)
Quarter: 2017Q2

REPORT INFORMATION
  Report Type: Spontaneous
  Country: KR (occurrence: KR)
  Receive Date: 20170116
  Receipt Date: 20170619
  Transmission Date: 20170830
  Serious: No
  Sender: FDA-Public Use
  Company Number: KR-009507513-1701KOR006214

PATIENT
  Age: 66 Year
  Sex: Male
  Weight: 54 kg

DRUGS (31)
  1. EMEND (FOSAPREPITANT DIMEGLUMINE) [Suspect]
     Active Substance: FOSAPREPITANT DIMEGLUMINE
     Dosage: 150 MG, ONCE
     Route: 042
     Dates: start: 20160524, end: 20160524
  2. ULCERLMIN [Concomitant]
     Active Substance: SUCRALFATE
     Indication: PROPHYLAXIS AGAINST GASTROINTESTINAL ULCER
     Dosage: 15 ML (CONCENTRATION: 1 G/15ML), TID
     Route: 048
     Dates: start: 20160311
  3. CISPLATIN. [Concomitant]
     Active Substance: CISPLATIN
     Dosage: 92.4 MG (STRENGTH 50 MG/100 ML), ONCE, CYCLE 3
     Route: 042
     Dates: start: 20160429, end: 20160429
  4. LASIX [Concomitant]
     Active Substance: FUROSEMIDE
     Dosage: 20 MG (CONCENTRATION: 20MG/2ML), ONCE
     Route: 042
     Dates: start: 20160408, end: 20160408
  5. EMEND (FOSAPREPITANT DIMEGLUMINE) [Suspect]
     Active Substance: FOSAPREPITANT DIMEGLUMINE
     Dosage: 150 MG, ONCE
     Route: 042
     Dates: start: 20160429, end: 20160429
  6. ALOXI [Concomitant]
     Active Substance: PALONOSETRON HYDROCHLORIDE
     Dosage: 0.25 MG, ONCE
     Route: 042
     Dates: start: 20160408, end: 20160408
  7. LASIX [Concomitant]
     Active Substance: FUROSEMIDE
     Dosage: 20 MG (CONCENTRATION: 20MG/2ML), ONCE
     Route: 042
     Dates: start: 20160429, end: 20160429
  8. LASIX [Concomitant]
     Active Substance: FUROSEMIDE
     Dosage: 20 MG (CONCENTRATION: 20MG/2ML), ONCE
     Route: 042
     Dates: start: 20160524, end: 20160524
  9. MANNITOL. [Concomitant]
     Active Substance: MANNITOL
     Dosage: 100 ML (CONCENTRATION: 15% 100ML), ONCE
     Route: 042
     Dates: start: 20160524, end: 20160524
  10. DEXAMETHASONE SODIUM PHOSPHATE. [Concomitant]
     Active Substance: DEXAMETHASONE SODIUM PHOSPHATE
     Dosage: 10 MG, QD
     Route: 042
     Dates: start: 20160424, end: 20160424
  11. DEXAMETHASONE SODIUM PHOSPHATE. [Concomitant]
     Active Substance: DEXAMETHASONE SODIUM PHOSPHATE
     Dosage: 10 MG, QD
     Route: 042
     Dates: start: 20160524, end: 20160524
  12. ALOXI [Concomitant]
     Active Substance: PALONOSETRON HYDROCHLORIDE
     Dosage: 0.25 MG, ONCE
     Route: 042
     Dates: start: 20160429, end: 20160429
  13. ALOXI [Concomitant]
     Active Substance: PALONOSETRON HYDROCHLORIDE
     Dosage: 0.25 MG, ONCE
     Route: 042
     Dates: start: 20160524, end: 20160524
  14. MANNITOL. [Concomitant]
     Active Substance: MANNITOL
     Dosage: 100 ML (CONCENTRATION: 15% 100ML), ONCE
     Route: 042
     Dates: start: 20160408, end: 20160408
  15. CISPLATIN. [Concomitant]
     Active Substance: CISPLATIN
     Indication: TONGUE NEOPLASM MALIGNANT STAGE UNSPECIFIED
     Dosage: 92.4 MG (STRENGTH 50 MG/100 ML), ONCE, CYCLE 1
     Route: 042
     Dates: start: 20160318, end: 20160318
  16. CISPLATIN (+) GIMERACIL (+) OTERACIL POTASSIUM (+) TEGAFUR [Concomitant]
     Indication: TONGUE NEOPLASM MALIGNANT STAGE UNSPECIFIED
     Dosage: 3 DF, BID
     Route: 048
     Dates: start: 20160318
  17. DEXAMETHASONE SODIUM PHOSPHATE. [Concomitant]
     Active Substance: DEXAMETHASONE SODIUM PHOSPHATE
     Indication: PROPHYLAXIS OF NAUSEA AND VOMITING
     Dosage: 10 MG, QD
     Route: 042
     Dates: start: 20160318, end: 20160318
  18. DEXAMETHASONE SODIUM PHOSPHATE. [Concomitant]
     Active Substance: DEXAMETHASONE SODIUM PHOSPHATE
     Dosage: 10 MG, QD
     Route: 042
     Dates: start: 20160408, end: 20160408
  19. NAXEN F [Concomitant]
     Indication: PAIN
     Dosage: 1 TABLET, BID
     Route: 048
     Dates: start: 20160311
  20. MATRIFEN [Concomitant]
     Active Substance: FENTANYL
     Indication: PAIN
     Dosage: CONCENTRATION: 25MCG/H 8.4CM2
     Route: 050
     Dates: start: 20160311
  21. EMEND (FOSAPREPITANT DIMEGLUMINE) [Suspect]
     Active Substance: FOSAPREPITANT DIMEGLUMINE
     Dosage: 150 MG, ONCE
     Route: 042
     Dates: start: 20160408, end: 20160408
  22. CISPLATIN. [Concomitant]
     Active Substance: CISPLATIN
     Dosage: 92.4 MG (STRENGTH 50 MG/100 ML), ONCE, CYCLE 2
     Route: 042
     Dates: start: 20160408, end: 20160408
  23. CISPLATIN. [Concomitant]
     Active Substance: CISPLATIN
     Dosage: 92.4 MG (STRENGTH 50 MG/100 ML), ONCE, CYCLE 4
     Route: 042
     Dates: start: 20160524, end: 20160524
  24. MANNITOL. [Concomitant]
     Active Substance: MANNITOL
     Indication: PROPHYLAXIS
     Dosage: 100 ML (CONCENTRATION: 15% 100ML), ONCE
     Route: 042
     Dates: start: 20160318, end: 20160318
  25. MANNITOL. [Concomitant]
     Active Substance: MANNITOL
     Dosage: 100 ML (CONCENTRATION: 15% 100ML), ONCE
     Route: 042
     Dates: start: 20160429, end: 20160429
  26. ZIPAN (TRAMADOL HYDROCHLORIDE) [Concomitant]
     Indication: PAIN
     Dosage: 100 MG (CONCENTRATION: 100 MG/2ML), ONCE
     Route: 042
     Dates: start: 20160318, end: 20160318
  27. EMEND (FOSAPREPITANT DIMEGLUMINE) [Suspect]
     Active Substance: FOSAPREPITANT DIMEGLUMINE
     Indication: PROPHYLAXIS OF NAUSEA AND VOMITING
     Dosage: 150 MG, ONCE
     Route: 042
     Dates: start: 20160318, end: 20160318
  28. ALOXI [Concomitant]
     Active Substance: PALONOSETRON HYDROCHLORIDE
     Indication: PROPHYLAXIS OF NAUSEA AND VOMITING
     Dosage: 0.25 MG, ONCE
     Route: 042
     Dates: start: 20160318, end: 20160318
  29. LASIX [Concomitant]
     Active Substance: FUROSEMIDE
     Indication: PROPHYLAXIS
     Dosage: 20 MG (CONCENTRATION: 20MG/2ML), ONCE
     Route: 042
     Dates: start: 20160318, end: 20160318
  30. PARAMACET [Concomitant]
     Active Substance: ACETAMINOPHEN\TRAMADOL
     Indication: PAIN
     Dosage: 1 TABLET, TID
     Route: 048
     Dates: start: 20160311
  31. MATRIFEN [Concomitant]
     Active Substance: FENTANYL
     Indication: PAIN
     Dosage: CONCENTRATION: 12MCG/H4.2CM2
     Route: 050
     Dates: start: 20160318

REACTIONS (2)
  - Abdominal pain [Recovered/Resolved]
  - Anaemia [Unknown]

NARRATIVE: CASE EVENT DATE: 20160318
